FAERS Safety Report 25968160 (Version 2)
Quarter: 2025Q4

REPORT INFORMATION
  Report Type: Report from Study
  Country: CA (occurrence: CA)
  Receive Date: 20251028
  Receipt Date: 20251113
  Transmission Date: 20260118
  Serious: Yes (Other)
  Sender: ABBVIE
  Company Number: CA-ABBVIE-6519244

PATIENT
  Sex: Male

DRUGS (1)
  1. SKYRIZI [Suspect]
     Active Substance: RISANKIZUMAB-RZAA
     Indication: Psoriasis
     Dosage: INJECT THE CONTENTS OF ONE SYRINGE (150MG) SC EVERY 12 WEEKS, SKYRIZI PFS ?150MG/ML, SOLUTION FOR...
     Route: 058

REACTIONS (1)
  - Neoplasm malignant [Unknown]
